FAERS Safety Report 5720296-3 (Version None)
Quarter: 2008Q2

REPORT INFORMATION
  Report Type: 
  Country: None (occurrence: None)
  Receive Date: 20080428
  Receipt Date: 20080418
  Transmission Date: 20081010
  Serious: Yes (Other)
  Sender: FDA-Public Use
  Company Number: GB-ROCHE-559959

PATIENT
  Sex: Female
  Weight: 79.4 kg

DRUGS (1)
  1. ORLISTAT [Suspect]
     Indication: OBESITY
     Dosage: THE PATIENT WAS STILL TAKING ORLISTAT ON THE 15 FEBRUARY 2008 BUT NOT AT THE TIME OF THE REPORT.
     Route: 048
     Dates: start: 20080107

REACTIONS (1)
  - THYROID DISORDER [None]
